FAERS Safety Report 8667678 (Version 2)
Quarter: 2013Q4

REPORT INFORMATION
  Report Type: Spontaneous
  Country: US (occurrence: US)
  Receive Date: 20120717
  Receipt Date: 20131101
  Transmission Date: 20140711
  Serious: No
  Sender: FDA-Public Use
  Company Number: US-009507513-1202USA00333

PATIENT
  Sex: Female

DRUGS (3)
  1. COSOPT [Suspect]
     Indication: GLAUCOMA
     Dosage: 1 DF, BID
     Route: 047
     Dates: end: 20090602
  2. LUMIGAN [Concomitant]
     Indication: GLAUCOMA
     Dosage: 1 DF, HS
  3. DIAMOX [Concomitant]

REACTIONS (4)
  - Eye burns [Recovered/Resolved]
  - Ocular hyperaemia [Recovered/Resolved]
  - Eye irritation [Recovered/Resolved]
  - Photophobia [Recovered/Resolved]
